FAERS Safety Report 11808739 (Version 3)
Quarter: 2016Q2

REPORT INFORMATION
  Report Type: Spontaneous
  Country: US (occurrence: US)
  Receive Date: 20151207
  Receipt Date: 20160603
  Transmission Date: 20160815
  Serious: No
  Sender: FDA-Public Use
  Company Number: US-ROCHE-1601626

PATIENT
  Age: 62 Year
  Sex: Female
  Weight: 79.45 kg

DRUGS (15)
  1. OXYCODONE [Concomitant]
     Active Substance: OXYCODONE
     Indication: RHEUMATOID ARTHRITIS
  2. ATENOLOL. [Concomitant]
     Active Substance: ATENOLOL
     Route: 048
  3. MORPHINE [Concomitant]
     Active Substance: MORPHINE
     Indication: RHEUMATOID ARTHRITIS
  4. ALBUTEROL. [Concomitant]
     Active Substance: ALBUTEROL
     Indication: RESTRICTIVE PULMONARY DISEASE
     Route: 065
  5. LEVOTHYROXINE. [Concomitant]
     Active Substance: LEVOTHYROXINE
     Indication: HYPOTHYROIDISM
     Route: 048
  6. OXYCODONE [Concomitant]
     Active Substance: OXYCODONE
     Indication: OSTEOARTHRITIS
  7. RECLAST [Concomitant]
     Active Substance: ZOLEDRONIC ACID
  8. ACTEMRA [Suspect]
     Active Substance: TOCILIZUMAB
     Indication: RHEUMATOID ARTHRITIS
     Route: 058
     Dates: start: 201404
  9. MORPHINE [Concomitant]
     Active Substance: MORPHINE
     Indication: PAIN
     Route: 065
  10. OXYCODONE [Concomitant]
     Active Substance: OXYCODONE
     Indication: PAIN
     Route: 048
  11. IMITREX [Concomitant]
     Active Substance: SUMATRIPTAN SUCCINATE
     Indication: MIGRAINE
     Route: 058
  12. VALACYCLOVIR [Concomitant]
     Active Substance: VALACYCLOVIR HYDROCHLORIDE
     Route: 048
  13. PREDNISONE. [Concomitant]
     Active Substance: PREDNISONE
     Indication: RHEUMATOID ARTHRITIS
     Route: 048
  14. HUMIRA [Concomitant]
     Active Substance: ADALIMUMAB
  15. DIAZEPAM. [Concomitant]
     Active Substance: DIAZEPAM
     Indication: ANXIETY
     Route: 048

REACTIONS (5)
  - Bronchitis [Not Recovered/Not Resolved]
  - Urinary tract infection [Not Recovered/Not Resolved]
  - Lung infection [Recovered/Resolved]
  - Upper respiratory tract infection [Recovered/Resolved with Sequelae]
  - Bronchitis [Recovered/Resolved with Sequelae]

NARRATIVE: CASE EVENT DATE: 20150905
